FAERS Safety Report 16895138 (Version 1)
Quarter: 2019Q4

REPORT INFORMATION
  Report Type: Spontaneous
  Country: US (occurrence: US)
  Receive Date: 20191008
  Receipt Date: 20191008
  Transmission Date: 20200122
  Serious: No
  Sender: FDA-Public Use
  Company Number: US-INDIVIOR US-INDV-116105-2018

PATIENT
  Sex: Male

DRUGS (4)
  1. PERCOCET                           /00446701/ [Suspect]
     Active Substance: ACETAMINOPHEN\OXYCODONE HYDROCHLORIDE\OXYCODONE TEREPHTHALATE
     Indication: PRODUCT USED FOR UNKNOWN INDICATION
     Dosage: 10 PERCOCET PER DAY
     Route: 065
     Dates: end: 201811
  2. SUBOXONE [Suspect]
     Active Substance: BUPRENORPHINE HYDROCHLORIDE\NALOXONE HYDROCHLORIDE
     Dosage: AT MOST 6 MG PER DAY (3MG BY USING A 2MG FILM AND CUTTING IT IN HALF)
     Route: 065
     Dates: start: 20181125
  3. DIAZEPAM. [Suspect]
     Active Substance: DIAZEPAM
     Indication: PRODUCT USED FOR UNKNOWN INDICATION
     Dosage: UNK
     Route: 065
     Dates: start: 201811
  4. SUBOXONE [Suspect]
     Active Substance: BUPRENORPHINE HYDROCHLORIDE\NALOXONE HYDROCHLORIDE
     Indication: DRUG DEPENDENCE
     Dosage: AT MOST 6 MG PER DAY (3MG BY USING A 2MG FILM AND CUTTING IT IN HALF)
     Route: 065

REACTIONS (9)
  - Intentional underdose [Unknown]
  - Drug withdrawal syndrome [Not Recovered/Not Resolved]
  - Psychomotor hyperactivity [Not Recovered/Not Resolved]
  - Nervousness [Not Recovered/Not Resolved]
  - Anxiety [Not Recovered/Not Resolved]
  - Drug abuse [Unknown]
  - Wrong technique in product usage process [Unknown]
  - Drug dependence [Recovered/Resolved]
  - Pre-existing condition improved [Recovered/Resolved]

NARRATIVE: CASE EVENT DATE: 201811
